FAERS Safety Report 9613592 (Version 2)
Quarter: 2013Q4

REPORT INFORMATION
  Report Type: Spontaneous
  Country: US (occurrence: US)
  Receive Date: 20131010
  Receipt Date: 20131212
  Transmission Date: 20140711
  Serious: No
  Sender: FDA-Public Use
  Company Number: US-009507513-1309USA008070

PATIENT
  Age: 31 Year
  Sex: Female
  Weight: 88.44 kg

DRUGS (2)
  1. NUVARING [Suspect]
     Indication: CONTRACEPTION
     Dosage: UNK
     Route: 067
     Dates: start: 20120723
  2. NUVARING [Suspect]
     Dosage: UNK
     Route: 067

REACTIONS (2)
  - Acne [Recovered/Resolved]
  - Incorrect product storage [Unknown]
